FAERS Safety Report 19953287 (Version 2)
Quarter: 2021Q4

REPORT INFORMATION
  Report Type: Spontaneous
  Country: CA (occurrence: CA)
  Receive Date: 20211013
  Receipt Date: 20211014
  Transmission Date: 20220303
  Serious: Yes (Other)
  Sender: FDA-Public Use
  Company Number: CA-CELGENE-CAN-20211001864

PATIENT
  Weight: 80.5 kg

DRUGS (1)
  1. REBLOZYL [Suspect]
     Active Substance: LUSPATERCEPT-AAMT
     Indication: Product used for unknown indication
     Dosage: 1.75 MILLIGRAM/KILOGRAM
     Route: 058
     Dates: start: 20210623

REACTIONS (1)
  - Full blood count decreased [Unknown]
